FAERS Safety Report 4980879-5 (Version None)
Quarter: 2006Q2

REPORT INFORMATION
  Report Type: 
  Country: None (occurrence: None)
  Receive Date: 20060424
  Receipt Date: 20060413
  Transmission Date: 20061013
  Serious: Yes (Hospitalization, Congenital Anomaly)
  Sender: FDA-Public Use
  Company Number: US-MERCK-0604USA02623

PATIENT
  Age: 45 Year
  Sex: Male
  Weight: 117 kg

DRUGS (1)
  1. VIOXX [Suspect]
     Route: 048
     Dates: start: 20010901, end: 20040901

REACTIONS (12)
  - ACUTE MYOCARDIAL INFARCTION [None]
  - ANXIETY [None]
  - BACK PAIN [None]
  - BUTTOCK PAIN [None]
  - CHEST PAIN [None]
  - CONGENITAL CORONARY ARTERY MALFORMATION [None]
  - HYPERLIPIDAEMIA [None]
  - HYPERTENSION [None]
  - MYOCARDIAL INFARCTION [None]
  - PELVIC PAIN [None]
  - VENTRICULAR HYPERTROPHY [None]
  - WEIGHT INCREASED [None]
